FAERS Safety Report 5892366-0 (Version None)
Quarter: 2008Q3

REPORT INFORMATION
  Report Type: 
  Country: None (occurrence: None)
  Receive Date: 20080919
  Receipt Date: 20080919
  Transmission Date: 20090109
  Serious: Yes (Other)
  Sender: FDA-Public Use
  Company Number: None

PATIENT
  Sex: Female

DRUGS (1)
  1. GABAPENTIN [Suspect]
     Dosage: 100MG -1 CAPSULE- 1 AT BEDTIME PO
     Route: 048
     Dates: start: 20080912, end: 20080914

REACTIONS (1)
  - FACIAL PALSY [None]
